FAERS Safety Report 10480538 (Version 1)
Quarter: 2014Q3

REPORT INFORMATION
  Report Type: Spontaneous
  Country: US (occurrence: None)
  Receive Date: 20140926
  Receipt Date: 20140926
  Transmission Date: 20150326
  Serious: Yes (Other)
  Sender: FDA-Public Use
  Company Number: None

PATIENT
  Age: 10 Year
  Sex: Male

DRUGS (3)
  1. CLONIDINE HCL ER [Suspect]
     Active Substance: CLONIDINE HYDROCHLORIDE
     Indication: ABNORMAL BEHAVIOUR
     Route: 048
  2. CLONIDINE HCL ER [Suspect]
     Active Substance: CLONIDINE HYDROCHLORIDE
     Indication: SLEEP DISORDER
     Route: 048
  3. ABILIFY [Concomitant]
     Active Substance: ARIPIPRAZOLE

REACTIONS (1)
  - Insomnia [None]

NARRATIVE: CASE EVENT DATE: 20140716
